FAERS Safety Report 24425283 (Version 2)
Quarter: 2025Q1

REPORT INFORMATION
  Report Type: Spontaneous
  Country: JP (occurrence: JP)
  Receive Date: 20241011
  Receipt Date: 20250116
  Transmission Date: 20250409
  Serious: Yes (Other)
  Sender: UCB
  Company Number: JP-UCBJ-CD202409479UCBPHAPROD

PATIENT

DRUGS (1)
  1. VIMPAT [Suspect]
     Active Substance: LACOSAMIDE
     Indication: Partial seizures
     Route: 048

REACTIONS (4)
  - Epilepsy [Unknown]
  - Adverse reaction [Unknown]
  - Drug ineffective [Unknown]
  - Off label use [Unknown]
